FAERS Safety Report 5100134-2 (Version None)
Quarter: 2006Q3

REPORT INFORMATION
  Report Type: 
  Country: None (occurrence: None)
  Receive Date: 20060731
  Receipt Date: 20050826
  Transmission Date: 20061208
  Serious: Yes (Other)
  Sender: FDA-Public Use
  Company Number: US-JNJFOC-20040909521

PATIENT
  Age: 6 Year
  Sex: Male
  Weight: 20.4119 kg

DRUGS (8)
  1. RISPERDAL (RIPERIDONE) UNSPECIFIED [Suspect]
     Indication: ATTENTION DEFICIT/HYPERACTIVITY DISORDER
     Dosage: SEE IMAGE
     Route: 048
     Dates: start: 20040212, end: 20040326
  2. RISPERDAL (RIPERIDONE) UNSPECIFIED [Suspect]
     Indication: PSYCHOMOTOR HYPERACTIVITY
     Dosage: SEE IMAGE
     Route: 048
     Dates: start: 20040212, end: 20040326
  3. CYPROHEPTADINE (CYPROCHEPTADINE) [Concomitant]
  4. ADDERAL (OBETROL) [Concomitant]
  5. STRATTERA (ALL OTHER THERAPEUTIC PRODUCTS) [Concomitant]
  6. D-AMPHETAMINE (DEXAMFETAMINE) [Concomitant]
  7. WELLBUTRIN [Concomitant]
  8. DIPHENHYDRAMINE HCL [Concomitant]

REACTIONS (3)
  - BLOOD ALKALINE PHOSPHATASE INCREASED [None]
  - CONVULSION [None]
  - INSOMNIA [None]
